FAERS Safety Report 4532224-7 (Version None)
Quarter: 2004Q4

REPORT INFORMATION
  Report Type: 
  Country: None (occurrence: None)
  Receive Date: 20041217
  Receipt Date: 20041206
  Transmission Date: 20050328
  Serious: Yes (Death)
  Sender: FDA-Public Use
  Company Number: MEDI-0002533(0)

PATIENT
  Sex: Male
  Weight: 4.82 kg

DRUGS (3)
  1. SYNAGIS [Suspect]
     Indication: ANTIVIRAL PROPHYLAXIS
     Dosage: 72 MG, 1 IN 30 D, INTRAMUSCULAR
     Route: 030
     Dates: start: 20041012, end: 20041112
  2. SYRON (SODIUM FEREDETATE) [Concomitant]
  3. ABIDEC (ERGOCALCIFEROL, ASCORBIC ACID, THIAMINE HYDROCHLORIDE, RETINOL [Concomitant]

REACTIONS (1)
  - SUDDEN INFANT DEATH SYNDROME [None]
